FAERS Safety Report 18384877 (Version 2)
Quarter: 2020Q4

REPORT INFORMATION
  Report Type: Report from Study
  Country: MX (occurrence: MX)
  Receive Date: 20201014
  Receipt Date: 20201120
  Transmission Date: 20210114
  Serious: Yes (Other)
  Sender: FDA-Public Use
  Company Number: NVSC2020MX274033

PATIENT
  Sex: Female

DRUGS (1)
  1. GALVUS MET [Suspect]
     Active Substance: METFORMIN HYDROCHLORIDE\VILDAGLIPTIN
     Indication: DIABETES MELLITUS
     Dosage: 50/850 MG UNK
     Route: 065

REACTIONS (6)
  - Eye disorder [Unknown]
  - Nausea [Unknown]
  - Stress [Unknown]
  - Malaise [Unknown]
  - Nasal congestion [Unknown]
  - Abdominal pain upper [Unknown]
